FAERS Safety Report 7105160-X (Version None)
Quarter: 2010Q4

REPORT INFORMATION
  Report Type: 
  Country: None (occurrence: None)
  Receive Date: 20101116
  Receipt Date: 20100809
  Transmission Date: 20110411
  Serious: No
  Sender: FDA-Public Use
  Company Number: US-ABBOTT-10P-163-0664194-00

PATIENT
  Sex: Male
  Weight: 127.12 kg

DRUGS (7)
  1. SIMCOR [Suspect]
     Indication: BLOOD CHOLESTEROL INCREASED
     Dosage: AT HOUR OF SLEEP
     Route: 048
     Dates: end: 20100701
  2. SIMCOR [Suspect]
     Indication: HIGH DENSITY LIPOPROTEIN DECREASED
  3. NIACIN [Concomitant]
     Indication: BLOOD CHOLESTEROL INCREASED
     Route: 048
     Dates: start: 20100810
  4. PREVACID [Concomitant]
     Indication: PRODUCT USED FOR UNKNOWN INDICATION
  5. VITAMIN B-12 [Concomitant]
     Indication: PRODUCT USED FOR UNKNOWN INDICATION
  6. HUMALOG [Concomitant]
     Indication: PRODUCT USED FOR UNKNOWN INDICATION
     Dosage: SLIDING SCALE
  7. ANDROGEL [Concomitant]
     Indication: HORMONE REPLACEMENT THERAPY

REACTIONS (6)
  - ABDOMINAL DISCOMFORT [None]
  - ABDOMINAL HERNIA [None]
  - BLOOD GLUCOSE INCREASED [None]
  - GASTRIC PH DECREASED [None]
  - GASTROOESOPHAGEAL REFLUX DISEASE [None]
  - POLYP [None]
